FAERS Safety Report 15773581 (Version 1)
Quarter: 2018Q4

REPORT INFORMATION
  Report Type: Report from Study
  Country: None (occurrence: BR)
  Receive Date: 20181228
  Receipt Date: 20181228
  Transmission Date: 20190205
  Serious: Yes (Other)
  Sender: FDA-Public Use
  Company Number: BR-ABBVIE-18K-020-2605982-00

PATIENT
  Age: 48 Year
  Sex: Female

DRUGS (2)
  1. HUMIRA [Suspect]
     Active Substance: ADALIMUMAB
     Indication: ANKYLOSING SPONDYLITIS
     Route: 058
     Dates: start: 20180818, end: 20181203
  2. NORIPURUM FOLICO [Suspect]
     Active Substance: FOLIC ACID\IRON POLYMALTOSE
     Indication: ANAEMIA
     Route: 042

REACTIONS (21)
  - Dysphonia [Recovered/Resolved]
  - Lacrimation increased [Recovered/Resolved]
  - Nasal congestion [Unknown]
  - Nasal congestion [Recovered/Resolved]
  - Cough [Unknown]
  - Lung disorder [Unknown]
  - Lacrimation increased [Unknown]
  - Cough [Unknown]
  - Influenza [Unknown]
  - Vein rupture [Unknown]
  - Dysphonia [Unknown]
  - Eye disorder [Unknown]
  - Oropharyngeal pain [Unknown]
  - Speech disorder [Recovered/Resolved]
  - Speech disorder [Unknown]
  - Vein disorder [Unknown]
  - Pneumonia [Recovered/Resolved]
  - Anaemia [Unknown]
  - Oropharyngeal pain [Recovered/Resolved]
  - Conjunctivitis [Recovered/Resolved]
  - Influenza [Recovered/Resolved]

NARRATIVE: CASE EVENT DATE: 201810
